FAERS Safety Report 4763719-9 (Version None)
Quarter: 2005Q3

REPORT INFORMATION
  Report Type: 
  Country: None (occurrence: None)
  Receive Date: 20050908
  Receipt Date: 20050907
  Transmission Date: 20060218
  Serious: Yes (Other)
  Sender: FDA-Public Use
  Company Number: DE-GLAXOSMITHKLINE-D0047445A

PATIENT
  Sex: Female

DRUGS (2)
  1. FORTUM [Suspect]
     Route: 065
  2. AMINOGLYCOSIDE [Suspect]
     Route: 065

REACTIONS (2)
  - DRUG INTERACTION [None]
  - PARESIS [None]
